FAERS Safety Report 4685957-6 (Version None)
Quarter: 2005Q2

REPORT INFORMATION
  Report Type: 
  Country: None (occurrence: None)
  Receive Date: 20050607
  Receipt Date: 20050607
  Transmission Date: 20051028
  Serious: No
  Sender: FDA-Public Use
  Company Number: None

PATIENT
  Sex: Male
  Weight: 100 kg

DRUGS (8)
  1. DOXORUBICIN [Suspect]
     Indication: HODGKIN'S DISEASE
     Dosage: 25 MG/M2 W 1, 3, 5, 7, 9, 11
     Dates: start: 20050218
  2. VINBLASTINE [Suspect]
     Dosage: 6 MG/M2 W 1, 3, 5, 7, 9, 11
  3. VINCRISTINE [Suspect]
     Dosage: 1.4 MG/M2 W 2, 4, 6, 8, 10, 12
  4. BLEOMYCIN [Suspect]
     Dosage: 5 U/M2 W 2, 4, 6, 8, 10, 12
  5. CYTOXAN [Suspect]
     Dosage: 6 MG/M2 W 1, 5, 9
  6. ETOPOSIDE [Suspect]
     Dosage: 60 MG/M2 W 3, 7, 11
  7. PREDNISONE [Suspect]
     Dosage: 40 MG/M2 PO QOD W 1-9, TAPER ON WEEKS 10 AND 11
  8. PROTONIX [Concomitant]

REACTIONS (4)
  - EROSIVE OESOPHAGITIS [None]
  - HAEMATEMESIS [None]
  - ODYNOPHAGIA [None]
  - RADIATION OESOPHAGITIS [None]
